FAERS Safety Report 4766554-0 (Version None)
Quarter: 2005Q3

REPORT INFORMATION
  Report Type: 
  Country: None (occurrence: None)
  Receive Date: 20050909
  Receipt Date: 20050830
  Transmission Date: 20060218
  Serious: Yes (Life-Threatening)
  Sender: FDA-Public Use
  Company Number: 2005122776

PATIENT
  Age: 71 Year
  Sex: Male

DRUGS (3)
  1. NEURONTIN [Suspect]
     Indication: ILL-DEFINED DISORDER
     Dosage: 900 MG (1 IN 1 D), ORAL
     Route: 048
     Dates: start: 20050501, end: 20050609
  2. RIFADIN [Suspect]
     Indication: ILL-DEFINED DISORDER
     Dosage: 900 MG (1 IN 1 D), ORAL
     Route: 048
     Dates: start: 20050501, end: 20050609
  3. VANCOMYCIN [Suspect]
     Indication: ILL-DEFINED DISORDER
     Dosage: 2 GRAM (1 IN 1 D), ORAL
     Route: 048
     Dates: start: 20050501, end: 20050609

REACTIONS (1)
  - NEUTROPENIA [None]
